FAERS Safety Report 9881915 (Version 2)
Quarter: 2014Q1

REPORT INFORMATION
  Report Type: Spontaneous
  Country: US (occurrence: US)
  Receive Date: 20140207
  Receipt Date: 20140316
  Transmission Date: 20141002
  Serious: No
  Sender: FDA-Public Use
  Company Number: US-009507513-1401USA011194

PATIENT
  Age: 65 Year
  Sex: Male

DRUGS (2)
  1. REBETOL [Suspect]
     Indication: HEPATITIS C
     Dosage: 800 MG, BID
     Route: 048
     Dates: start: 20140115, end: 20140127
  2. PEGINTRON [Suspect]
     Indication: HEPATITIS C
     Dosage: REDIPEN, 0.5 ML, QW,
     Route: 058
     Dates: start: 20140115, end: 20140127

REACTIONS (12)
  - Feeling jittery [Unknown]
  - Mental disorder [Unknown]
  - Cold sweat [Unknown]
  - Influenza like illness [Unknown]
  - Chills [Unknown]
  - Headache [Unknown]
  - Vomiting [Unknown]
  - Diarrhoea [Unknown]
  - Rash [Unknown]
  - Chills [Unknown]
  - Headache [Unknown]
  - Vomiting [Unknown]
